FAERS Safety Report 6213630-1 (Version None)
Quarter: 2009Q2

REPORT INFORMATION
  Report Type: 
  Country: None (occurrence: None)
  Receive Date: 20090601
  Receipt Date: 20090518
  Transmission Date: 20091009
  Serious: Yes (Other)
  Sender: FDA-Public Use
  Company Number: 2009AL003520

PATIENT
  Sex: Male

DRUGS (2)
  1. FEVERALL [Suspect]
  2. CARBAMAZEPINE [Suspect]
     Indication: BIPOLAR DISORDER
     Dosage: 600 MG;QD;PO
     Route: 048

REACTIONS (1)
  - MULTIPLE DRUG OVERDOSE [None]
